FAERS Safety Report 23201637 (Version 1)
Quarter: 2023Q4

REPORT INFORMATION
  Report Type: Spontaneous
  Country: US (occurrence: None)
  Receive Date: 20231117
  Receipt Date: 20231117
  Transmission Date: 20240110
  Serious: Yes (Other)
  Sender: FDA-Public Use
  Company Number: None

PATIENT
  Age: 66 Year
  Sex: Female
  Weight: 66.15 kg

DRUGS (7)
  1. ALENDRONATE SODIUM [Suspect]
     Active Substance: ALENDRONATE SODIUM
     Indication: Osteoporosis
     Dosage: OTHER QUANTITY : 1 TABLET(S);?
     Route: 048
     Dates: start: 20230702, end: 20231022
  2. Viactive Calcium [Concomitant]
  3. VITAMIN D NOS [Concomitant]
     Active Substance: VITAMIN D NOS
  4. Vit K chews [Concomitant]
  5. Complete Adult 50+ Multivitamin [Concomitant]
  6. Mulitimineral Supplement [Concomitant]
  7. FLINTSTONES COMPLETE [Concomitant]

REACTIONS (4)
  - Myalgia [None]
  - Arthralgia [None]
  - Sleep disorder [None]
  - Exercise tolerance decreased [None]

NARRATIVE: CASE EVENT DATE: 20230825
